FAERS Safety Report 11027168 (Version 2)
Quarter: 2015Q2

REPORT INFORMATION
  Report Type: Spontaneous
  Country: CA (occurrence: CA)
  Receive Date: 20150414
  Receipt Date: 20150422
  Transmission Date: 20150821
  Serious: Yes (Life-Threatening, Other)
  Sender: FDA-Public Use
  Company Number: CA-BAXTER-2015BAX019507

PATIENT
  Age: 56 Year
  Sex: Male

DRUGS (3)
  1. DIANEAL W/ DEXTROSE 2.5% [Suspect]
     Active Substance: CALCIUM CHLORIDE\DEXTROSE\MAGNESIUM CHLORIDE\SODIUM CHLORIDE\SODIUM LACTATE
     Indication: PERITONEAL DIALYSIS
     Route: 033
     Dates: start: 201411
  2. DIANEAL W/ DEXTROSE 2.5% [Suspect]
     Active Substance: CALCIUM CHLORIDE\DEXTROSE\MAGNESIUM CHLORIDE\SODIUM CHLORIDE\SODIUM LACTATE
     Route: 033
  3. EXTRANEAL [Suspect]
     Active Substance: CALCIUM CHLORIDE\ICODEXTRIN\MAGNESIUM CHLORIDE\SODIUM CHLORIDE\SODIUM LACTATE
     Indication: PERITONEAL DIALYSIS
     Route: 033
     Dates: start: 20150131, end: 20150331

REACTIONS (13)
  - Restless legs syndrome [Recovering/Resolving]
  - Mental disorder [Recovering/Resolving]
  - Nausea [Recovering/Resolving]
  - Anxiety [Recovering/Resolving]
  - Hyperaesthesia [Recovering/Resolving]
  - Sensorimotor disorder [Recovering/Resolving]
  - Feeling abnormal [Recovering/Resolving]
  - Folliculitis [Recovering/Resolving]
  - Insomnia [Recovering/Resolving]
  - Nervous system disorder [Recovering/Resolving]
  - Hypersensitivity [Recovering/Resolving]
  - Panic attack [Recovering/Resolving]
  - Drug hypersensitivity [Recovering/Resolving]
